FAERS Safety Report 5278539-9 (Version None)
Quarter: 2007Q1

REPORT INFORMATION
  Report Type: 
  Country: None (occurrence: None)
  Receive Date: 20061213
  Receipt Date: 20050623
  Transmission Date: 20070707
  Serious: Yes (Hospitalization)
  Sender: FDA-Public Use
  Company Number: 2005UW09595

PATIENT
  Age: 14 Year
  Sex: Female

DRUGS (2)
  1. SEROQUEL [Suspect]
     Dosage: 6000 MG PO
     Route: 048
     Dates: start: 20050618
  2. SYNTHROID [Suspect]
     Dosage: 6 G

REACTIONS (1)
  - OVERDOSE [None]
